FAERS Safety Report 15154479 (Version 4)
Quarter: 2019Q1

REPORT INFORMATION
  Report Type: Spontaneous
  Country: US (occurrence: US)
  Receive Date: 20180717
  Receipt Date: 20190314
  Transmission Date: 20190417
  Serious: No
  Sender: FDA-Public Use
  Company Number: US-PFIZER INC-2018285441

PATIENT
  Age: 43 Year
  Sex: Female
  Weight: 47 kg

DRUGS (13)
  1. DENTA 5000 PLUS [Concomitant]
     Active Substance: SODIUM FLUORIDE
     Indication: DENTAL FLUORIDE THERAPY
     Dosage: BRUSH IT ON AND SPIT AS MUCH OUT AS SHE CAN , 2X/DAY
  2. LYRICA [Suspect]
     Active Substance: PREGABALIN
     Indication: PAIN
     Dosage: 50 MG, 2X/DAY
     Route: 048
  3. FENTANYL. [Concomitant]
     Active Substance: FENTANYL
     Indication: PAIN
     Dosage: 2 DF
     Route: 061
  4. BACLOFEN. [Concomitant]
     Active Substance: BACLOFEN
     Indication: PAIN
     Dosage: 10 MG, 1-2 TABLETS 3X/DAY, AS NEEDED
     Route: 048
     Dates: start: 2005
  5. LYRICA [Suspect]
     Active Substance: PREGABALIN
     Indication: BACK PAIN
  6. BACLOFEN. [Concomitant]
     Active Substance: BACLOFEN
     Indication: MUSCLE SPASMS
  7. LYRICA [Suspect]
     Active Substance: PREGABALIN
     Indication: NEUROPATHY PERIPHERAL
     Dosage: 50 MG, 1X/DAY
  8. CICLOPIROX. [Concomitant]
     Active Substance: CICLOPIROX
     Indication: LIMB INJURY
     Dosage: UNK
     Dates: start: 20180628
  9. LYRICA [Suspect]
     Active Substance: PREGABALIN
     Indication: SPINAL CORD INJURY
     Dosage: 150 MG, 1X/DAY
  10. LYRICA [Suspect]
     Active Substance: PREGABALIN
     Indication: SCIATICA
     Dosage: 75 MG, 3X/DAY
     Route: 048
  11. NAPROXEN. [Concomitant]
     Active Substance: NAPROXEN
     Indication: PAIN
     Dosage: 500 MG, 2X/DAY
     Route: 048
     Dates: start: 2003
  12. NAPROXEN. [Concomitant]
     Active Substance: NAPROXEN
     Indication: INFLAMMATION
  13. TRAMADOL. [Concomitant]
     Active Substance: TRAMADOL
     Indication: PAIN
     Dosage: 50 MG, AS NEEDED

REACTIONS (16)
  - Night sweats [Unknown]
  - Constipation [Unknown]
  - Intentional product misuse [Unknown]
  - Hyperhidrosis [Unknown]
  - Vision blurred [Unknown]
  - Pain [Not Recovered/Not Resolved]
  - Depression [Unknown]
  - Impaired driving ability [Unknown]
  - Withdrawal syndrome [Unknown]
  - Hot flush [Unknown]
  - Restlessness [Unknown]
  - Product use issue [Unknown]
  - Insomnia [Unknown]
  - Lactose intolerance [Unknown]
  - Burning sensation [Unknown]
  - Hypoaesthesia [Unknown]

NARRATIVE: CASE EVENT DATE: 201806
